FAERS Safety Report 6143467-3 (Version None)
Quarter: 2009Q2

REPORT INFORMATION
  Report Type: 
  Country: None (occurrence: None)
  Receive Date: 20090403
  Receipt Date: 20090323
  Transmission Date: 20091009
  Serious: Yes (Other)
  Sender: FDA-Public Use
  Company Number: PHHY2009DE05441

PATIENT
  Sex: Male

DRUGS (11)
  1. RASILEZ [Suspect]
     Indication: HYPERTENSION
     Dosage: 150 MG, QD
     Dates: start: 20080729, end: 20090128
  2. RASILEZ [Suspect]
     Dosage: 150 MG, BID
     Dates: start: 20090129, end: 20090203
  3. METFORMIN HCL [Concomitant]
  4. ASPIRIN [Concomitant]
  5. METO-TABLINEN [Concomitant]
  6. SIMVABETA [Concomitant]
  7. RAMIPRIL [Concomitant]
  8. AMLODIPINE BESYLATE [Concomitant]
  9. TORASEMIDE [Concomitant]
  10. ISDN [Concomitant]
  11. KALINOR [Concomitant]

REACTIONS (7)
  - DERMATITIS BULLOUS [None]
  - MALAISE [None]
  - PRURITUS [None]
  - RASH ERYTHEMATOUS [None]
  - RASH MACULO-PAPULAR [None]
  - SKIN EXFOLIATION [None]
  - SKIN FISSURES [None]
